FAERS Safety Report 10254246 (Version 1)
Quarter: 2014Q2

REPORT INFORMATION
  Report Type: Report from Study
  Country: ZA (occurrence: ZA)
  Receive Date: 20140624
  Receipt Date: 20140624
  Transmission Date: 20141212
  Serious: Yes (Death, Other)
  Sender: FDA-Public Use
  Company Number: ZA-ROCHE-1423018

PATIENT
  Sex: Female

DRUGS (7)
  1. MIRCERA [Suspect]
     Indication: NEPHROGENIC ANAEMIA
     Route: 058
     Dates: start: 20121203
  2. MIRCERA [Suspect]
     Route: 058
     Dates: start: 201402
  3. RECORMON [Concomitant]
     Route: 058
     Dates: start: 20080829
  4. RECORMON [Concomitant]
     Route: 058
     Dates: start: 200904
  5. RECORMON [Concomitant]
     Route: 058
     Dates: start: 200906, end: 200909
  6. RECORMON [Concomitant]
     Route: 058
     Dates: start: 201401
  7. RECORMON [Concomitant]
     Route: 058
     Dates: start: 201402

REACTIONS (2)
  - Death [Fatal]
  - Haemorrhage [Unknown]
